FAERS Safety Report 16341048 (Version 1)
Quarter: 2019Q2

REPORT INFORMATION
  Report Type: Report from Study
  Country: None (occurrence: CH)
  Receive Date: 20190522
  Receipt Date: 20190522
  Transmission Date: 20190711
  Serious: Yes (Other)
  Sender: FDA-Public Use
  Company Number: CH-ABBVIE-19K-151-2772300-00

PATIENT

DRUGS (1)
  1. HUMIRA [Suspect]
     Active Substance: ADALIMUMAB
     Indication: PRODUCT USED FOR UNKNOWN INDICATION
     Route: 064
     Dates: start: 2018, end: 20180905

REACTIONS (3)
  - Foetal exposure during pregnancy [Unknown]
  - Foetal growth restriction [Unknown]
  - Tyrosinaemia [Unknown]
